FAERS Safety Report 7755410-1 (Version None)
Quarter: 2011Q3

REPORT INFORMATION
  Report Type: 
  Country: None (occurrence: None)
  Receive Date: 20110916
  Receipt Date: 20110912
  Transmission Date: 20111222
  Serious: Yes (Other)
  Sender: FDA-Public Use
  Company Number: US-TEVA-300181USA

PATIENT

DRUGS (2)
  1. ANTABUSE [Suspect]
     Route: 048
  2. SSRI (NOS) [Suspect]

REACTIONS (2)
  - DRUG WITHDRAWAL SYNDROME [None]
  - NEUROPATHY PERIPHERAL [None]
